FAERS Safety Report 5800267-9 (Version None)
Quarter: 2008Q3

REPORT INFORMATION
  Report Type: 
  Country: None (occurrence: None)
  Receive Date: 20080703
  Receipt Date: 20080623
  Transmission Date: 20090109
  Serious: Yes (Other)
  Sender: FDA-Public Use
  Company Number: PHEH2008US05274

PATIENT
  Age: 83 Year
  Sex: Male
  Weight: 63.492 kg

DRUGS (5)
  1. DIOVAN HCT [Suspect]
     Indication: HYPERTENSION
     Dosage: 160 MG VAL, 25 MG HCT, QD
     Route: 048
  2. FLOMAX [Concomitant]
  3. PROSCAR [Concomitant]
  4. GLUCOSAMINE [Concomitant]
  5. VITAMINS [Concomitant]

REACTIONS (4)
  - AMNESIA [None]
  - CONCOMITANT DISEASE AGGRAVATED [None]
  - HEART RATE INCREASED [None]
  - HEART RATE IRREGULAR [None]
